FAERS Safety Report 5204793-5 (Version None)
Quarter: 2007Q1

REPORT INFORMATION
  Report Type: 
  Country: None (occurrence: None)
  Receive Date: 20070110
  Receipt Date: 20060816
  Transmission Date: 20070707
  Serious: No
  Sender: FDA-Public Use
  Company Number: US-BRISTOL-MYERS SQUIBB COMPANY-13448089

PATIENT
  Age: 10 Year
  Sex: Male

DRUGS (6)
  1. ABILIFY [Suspect]
     Indication: BIPOLAR I DISORDER
     Route: 048
     Dates: start: 20060719, end: 20060719
  2. ELAVIL [Concomitant]
  3. EFFEXOR [Concomitant]
  4. ADDERALL 10 [Concomitant]
     Dates: end: 20060719
  5. WELLBUTRIN [Concomitant]
     Dates: end: 20060719
  6. SEROQUEL [Concomitant]
     Dates: end: 20060719

REACTIONS (1)
  - MUSCLE TWITCHING [None]
